FAERS Safety Report 11518254 (Version 1)
Quarter: 2015Q3

REPORT INFORMATION
  Report Type: Spontaneous
  Country: US (occurrence: US)
  Receive Date: 20150917
  Receipt Date: 20150917
  Transmission Date: 20151125
  Serious: Yes (Other)
  Sender: FDA-Public Use
  Company Number: US-INDIANA BOTANIC GARDENS, INC.-1042046

PATIENT
  Age: 51 Year
  Sex: Male
  Weight: 75 kg

DRUGS (5)
  1. COLON CLEANSE (DIETARY SUPPLEMENT) CAPSULE [Suspect]
     Active Substance: DIETARY SUPPLEMENT
     Route: 048
     Dates: start: 20150828
  2. SEROQUEL [Concomitant]
     Active Substance: QUETIAPINE FUMARATE
  3. LUNG FORMULA (DIETARY SUPPLEMENT) [Suspect]
     Active Substance: DIETARY SUPPLEMENT
     Route: 048
     Dates: start: 20150828
  4. HERBAL 9 ESSENTIAL (DIETARY SUPPLEMENT) [Suspect]
     Active Substance: DIETARY SUPPLEMENT
     Route: 048
     Dates: start: 20150828
  5. MSM (METHLYSULFONYLMETHANE) (DIETARY SUPPLEMENT) [Suspect]
     Active Substance: DIMETHYL SULFONE
     Route: 048

REACTIONS (7)
  - Rash pruritic [Recovered/Resolved]
  - Pyrexia [Recovered/Resolved]
  - Dyspnoea [Recovered/Resolved]
  - Rash papular [Recovered/Resolved]
  - Hypersensitivity [Recovered/Resolved]
  - Pruritus [Recovered/Resolved]
  - Arthralgia [Recovered/Resolved]

NARRATIVE: CASE EVENT DATE: 20150903
